FAERS Safety Report 7657243-3 (Version None)
Quarter: 2011Q3

REPORT INFORMATION
  Report Type: 
  Country: None (occurrence: None)
  Receive Date: 20110804
  Receipt Date: 20110721
  Transmission Date: 20111222
  Serious: Yes (Other)
  Sender: FDA-Public Use
  Company Number: PHHY2011TW53248

PATIENT
  Age: 75 Year
  Sex: Male

DRUGS (1)
  1. ZOLEDRONOC ACID [Suspect]
     Indication: OSTEOPOROSIS
     Dosage: 5 MG/ 100C.C (ONCE IN YEAR)
     Route: 042
     Dates: start: 20100523

REACTIONS (3)
  - COMMINUTED FRACTURE [None]
  - DRUG INEFFECTIVE [None]
  - FALL [None]
